FAERS Safety Report 9448107 (Version 1)
Quarter: 2013Q3

REPORT INFORMATION
  Report Type: Spontaneous
  Country: US (occurrence: None)
  Receive Date: 20130807
  Receipt Date: 20130807
  Transmission Date: 20140515
  Serious: Yes (Other)
  Sender: FDA-Public Use
  Company Number: None

PATIENT
  Age: 43 Year
  Sex: Female
  Weight: 72.58 kg

DRUGS (1)
  1. BOTOX [Suspect]
     Indication: MIGRAINE
     Dates: start: 20130723

REACTIONS (6)
  - Nausea [None]
  - Asthenia [None]
  - Dizziness [None]
  - Fatigue [None]
  - Neck pain [None]
  - Coordination abnormal [None]
